FAERS Safety Report 6731456-7 (Version None)
Quarter: 2010Q2

REPORT INFORMATION
  Report Type: 
  Country: None (occurrence: None)
  Receive Date: 20100519
  Receipt Date: 20100510
  Transmission Date: 20101027
  Serious: Yes (Hospitalization)
  Sender: FDA-Public Use
  Company Number: DE-BIOGENIDEC-2010BI003748

PATIENT
  Age: 36 Year
  Sex: Male
  Weight: 80 kg

DRUGS (3)
  1. TYSABRI [Suspect]
     Indication: MULTIPLE SCLEROSIS
     Route: 042
     Dates: start: 20080606
  2. METFORMIN HYDROCHLORIDE [Concomitant]
  3. INSULIN [Concomitant]

REACTIONS (1)
  - CENTRAL NERVOUS SYSTEM INFLAMMATION [None]
